FAERS Safety Report 13946289 (Version 1)
Quarter: 2017Q3

REPORT INFORMATION
  Report Type: Report from Study
  Country: US (occurrence: US)
  Receive Date: 20170907
  Receipt Date: 20170907
  Transmission Date: 20171128
  Serious: No
  Sender: FDA-Public Use
  Company Number: PHEH2017US028125

PATIENT

DRUGS (1)
  1. COSENTYX [Suspect]
     Active Substance: SECUKINUMAB
     Indication: PRODUCT USED FOR UNKNOWN INDICATION
     Dosage: 150 MG, QW
     Route: 058

REACTIONS (8)
  - Malaise [Unknown]
  - Inflammation [Unknown]
  - Skin hypopigmentation [Unknown]
  - Insomnia [Unknown]
  - Injection site pain [Unknown]
  - Ear pain [Unknown]
  - Hypokinesia [Unknown]
  - Oropharyngeal pain [Unknown]
